FAERS Safety Report 5121577-7 (Version None)
Quarter: 2006Q4

REPORT INFORMATION
  Report Type: 
  Country: None (occurrence: None)
  Receive Date: 20061006
  Receipt Date: 20060926
  Transmission Date: 20070319
  Serious: Yes (Other)
  Sender: FDA-Public Use
  Company Number: US-JNJFOC-20060702149

PATIENT
  Sex: Female
  Weight: 84.37 kg

DRUGS (17)
  1. REMICADE [Suspect]
     Route: 042
  2. REMICADE [Suspect]
     Indication: CROHN'S DISEASE
     Route: 042
  3. HUMIRA [Concomitant]
  4. HUMIRA [Concomitant]
  5. COUMADIN [Concomitant]
  6. ATENOLOL [Concomitant]
  7. LASIX [Concomitant]
  8. POTASSIUM CHLORIDE [Concomitant]
  9. ENTOCORT [Concomitant]
  10. PENTASA [Concomitant]
  11. ACIPHEX [Concomitant]
  12. LOMOTIL [Concomitant]
  13. COLESTID [Concomitant]
  14. FOSAMAX [Concomitant]
  15. IMITREX [Concomitant]
  16. LEVSINEX [Concomitant]
  17. CELEBREX [Concomitant]

REACTIONS (2)
  - ATRIAL FIBRILLATION [None]
  - CARDIAC FAILURE CONGESTIVE [None]
